FAERS Safety Report 19107353 (Version 1)
Quarter: 2021Q2

REPORT INFORMATION
  Report Type: Spontaneous
  Country: US (occurrence: US)
  Receive Date: 20210408
  Receipt Date: 20210408
  Transmission Date: 20210717
  Serious: Yes (Other)
  Sender: FDA-Public Use
  Company Number: US-GLAXOSMITHKLINE-US2021GSK078307

PATIENT
  Sex: Female

DRUGS (4)
  1. ZANTAC [Suspect]
     Active Substance: RANITIDINE HYDROCHLORIDE
     Indication: RHEUMATOID ARTHRITIS
     Dosage: 300 MG, WE
     Route: 065
     Dates: start: 200606, end: 201206
  2. ZANTAC [Suspect]
     Active Substance: RANITIDINE HYDROCHLORIDE
     Indication: RHEUMATOID ARTHRITIS
     Dosage: 300 MG, WE
     Route: 065
     Dates: start: 200606, end: 201206
  3. RANITIDINE CAPSULE [Suspect]
     Active Substance: RANITIDINE
     Indication: RHEUMATOID ARTHRITIS
     Dosage: 300 MG, WE
     Route: 065
     Dates: start: 200606, end: 201206
  4. ZANTAC [Suspect]
     Active Substance: RANITIDINE HYDROCHLORIDE
     Indication: RHEUMATOID ARTHRITIS
     Dosage: 300 MG, WE
     Route: 065
     Dates: start: 200606, end: 201206

REACTIONS (1)
  - Bladder cancer [Unknown]
